FAERS Safety Report 5618473-5 (Version None)
Quarter: 2008Q1

REPORT INFORMATION
  Report Type: 
  Country: None (occurrence: None)
  Receive Date: 20080207
  Receipt Date: 20080130
  Transmission Date: 20080703
  Serious: Yes (Hospitalization)
  Sender: FDA-Public Use
  Company Number: B0482481A

PATIENT
  Age: 63 Year
  Sex: Male
  Weight: 65 kg

DRUGS (10)
  1. PAXIL [Suspect]
     Indication: DEPRESSION
     Route: 048
     Dates: start: 20040929
  2. CONIEL [Concomitant]
     Indication: HYPERTENSION
     Dosage: 4MG TWICE PER DAY
     Route: 048
     Dates: start: 20040804
  3. NU-LOTAN [Concomitant]
     Indication: HYPERTENSION
     Dosage: 50MG TWICE PER DAY
     Route: 048
     Dates: start: 20030101
  4. MYSLEE [Concomitant]
     Indication: INSOMNIA
     Dosage: 10MG PER DAY
     Route: 048
     Dates: start: 20070714
  5. ZYLORIC [Concomitant]
     Indication: GOUT
     Dosage: 50MG PER DAY
     Route: 048
     Dates: start: 20030101
  6. FLIVAS [Concomitant]
     Indication: BENIGN PROSTATIC HYPERPLASIA
     Dosage: 50MG PER DAY
     Route: 048
     Dates: start: 20040924
  7. RENAGEL [Concomitant]
     Indication: BLOOD PHOSPHORUS INCREASED
     Dosage: 500MG THREE TIMES PER DAY
     Route: 048
     Dates: start: 20070501
  8. TAGAMET [Concomitant]
     Indication: GASTRITIS
     Dosage: 200MG UNKNOWN
     Route: 048
     Dates: start: 20030101
  9. SODIUM BICARBONATE [Concomitant]
     Indication: METABOLIC ACIDOSIS
     Dosage: 1.5G UNKNOWN
     Route: 048
     Dates: start: 20070724, end: 20070801
  10. THYRADIN [Concomitant]
     Indication: HYPOTHYROIDISM
     Dosage: 50MCG UNKNOWN
     Route: 048
     Dates: start: 20040917

REACTIONS (17)
  - ALANINE AMINOTRANSFERASE INCREASED [None]
  - ALTERED STATE OF CONSCIOUSNESS [None]
  - AZOTAEMIA [None]
  - BLOOD CALCIUM DECREASED [None]
  - BLOOD CHLORIDE DECREASED [None]
  - BLOOD CHOLINESTERASE DECREASED [None]
  - BLOOD CREATINE PHOSPHOKINASE INCREASED [None]
  - BLOOD CREATININE INCREASED [None]
  - BLOOD LACTATE DEHYDROGENASE INCREASED [None]
  - BLOOD PHOSPHORUS INCREASED [None]
  - BLOOD POTASSIUM INCREASED [None]
  - BLOOD SODIUM DECREASED [None]
  - BLOOD UREA INCREASED [None]
  - BLOOD URIC ACID INCREASED [None]
  - PROTEIN TOTAL DECREASED [None]
  - PYREXIA [None]
  - RENAL FAILURE CHRONIC [None]
